FAERS Safety Report 8919310 (Version 1)
Quarter: 2012Q4

REPORT INFORMATION
  Report Type: Spontaneous
  Country: BR (occurrence: None)
  Receive Date: 20121114
  Receipt Date: 20121114
  Transmission Date: 20130627
  Serious: Yes (Death, Other)
  Sender: FDA-Public Use
  Company Number: CIP-2012-00425

PATIENT
  Age: 77 Year

DRUGS (5)
  1. EPIRUBICIN [Suspect]
     Indication: BREAST CANCER
  2. DOCETAXEL [Suspect]
     Indication: BREAST CANCER
  3. FLUOROURACIL (FLUOROURACIL) [Suspect]
     Indication: BREAST CANCER
  4. CYCLOPHOSPHAMIDE [Suspect]
     Indication: BREAST CANCER
  5. TRASTUZUMAB [Suspect]
     Indication: BREAST CANCER
     Route: 058

REACTIONS (4)
  - Anaemia [None]
  - Febrile neutropenia [None]
  - Thrombocytopenia [None]
  - Septic shock [None]
